FAERS Safety Report 6288615-X (Version None)
Quarter: 2009Q3

REPORT INFORMATION
  Report Type: 
  Country: None (occurrence: None)
  Receive Date: 20090729
  Receipt Date: 20090715
  Transmission Date: 20100115
  Serious: Yes (Hospitalization, Other)
  Sender: FDA-Public Use
  Company Number: US-ELI_LILLY_AND_COMPANY-US200907005752

PATIENT
  Sex: Female
  Weight: 40.363 kg

DRUGS (4)
  1. FORTEO [Suspect]
     Indication: OSTEOPOROSIS
     Dosage: UNK, UNK
     Dates: start: 20090511
  2. FORTEO [Suspect]
     Dosage: UNK, UNK
     Dates: start: 20090511
  3. VIACTIV /USA/ [Concomitant]
  4. CITRICAL [Concomitant]

REACTIONS (18)
  - APPENDICECTOMY [None]
  - DOCUMENTED HYPERSENSITIVITY TO ADMINISTERED DRUG [None]
  - DRUG HYPERSENSITIVITY [None]
  - DYSPHONIA [None]
  - ERYTHEMA [None]
  - HYPERSENSITIVITY [None]
  - INFUSION SITE EXTRAVASATION [None]
  - INJECTION SITE ERYTHEMA [None]
  - INJECTION SITE HAEMATOMA [None]
  - INTRAOCULAR LENS IMPLANT [None]
  - IRRITABILITY [None]
  - MALAISE [None]
  - PAIN IN EXTREMITY [None]
  - POSTNASAL DRIP [None]
  - PRURITUS [None]
  - RHINORRHOEA [None]
  - THROAT TIGHTNESS [None]
  - VISION BLURRED [None]
